FAERS Safety Report 8134488-X (Version None)
Quarter: 2012Q1

REPORT INFORMATION
  Report Type: 
  Country: None (occurrence: None)
  Receive Date: 20120103
  Receipt Date: 20111108
  Transmission Date: 20120608
  Serious: No
  Sender: FDA-Public Use
  Company Number: AE-2011-003205

PATIENT
  Age: 54 Year
  Sex: Female
  Weight: 73.4827 kg

DRUGS (4)
  1. INCIVEK [Suspect]
     Dosage: 2250 MG (750 MG, 1 IN 8 HR), ORAL
     Route: 048
     Dates: start: 20111031, end: 20111106
  2. RIBAVIRIN [Concomitant]
  3. SPIRONOLACTONE [Concomitant]
  4. PEGASYS [Concomitant]

REACTIONS (1)
  - MUSCLE SPASMS [None]
